FAERS Safety Report 23999544 (Version 1)
Quarter: 2024Q2

REPORT INFORMATION
  Report Type: Spontaneous
  Country: PL (occurrence: PL)
  Receive Date: 20240621
  Receipt Date: 20240621
  Transmission Date: 20240716
  Serious: Yes (Hospitalization, Other)
  Sender: FDA-Public Use
  Company Number: PL-009507513-2405POL008940

PATIENT
  Age: 64 Year
  Sex: Male

DRUGS (4)
  1. CARBOPLATIN [Suspect]
     Active Substance: CARBOPLATIN
     Indication: Lung adenocarcinoma
     Dosage: UNK
  2. PEMETREXED [Suspect]
     Active Substance: PEMETREXED
     Indication: Lung adenocarcinoma
     Dosage: UNK
  3. PEMBROLIZUMAB [Suspect]
     Active Substance: PEMBROLIZUMAB
     Indication: Lung adenocarcinoma
     Dosage: 400 MG, EVERY 6 WEEKS
     Dates: start: 202109
  4. PEMBROLIZUMAB [Suspect]
     Active Substance: PEMBROLIZUMAB
     Dosage: UNK
     Dates: start: 202104

REACTIONS (8)
  - Cardiomyopathy [Recovering/Resolving]
  - Diabetes mellitus [Recovering/Resolving]
  - Pulmonary fibrosis [Unknown]
  - Interstitial lung disease [Unknown]
  - Renal failure [Recovering/Resolving]
  - Neoplasm progression [Unknown]
  - Bone pain [Unknown]
  - Cancer pain [Unknown]

NARRATIVE: CASE EVENT DATE: 20210101
